FAERS Safety Report 9028803 (Version 1)
Quarter: 2013Q1

REPORT INFORMATION
  Report Type: Spontaneous
  Country: US (occurrence: US)
  Receive Date: 20130124
  Receipt Date: 20130124
  Transmission Date: 20140127
  Serious: Yes (Hospitalization)
  Sender: FDA-Public Use
  Company Number: US-BAYER-2013-008154

PATIENT
  Age: 45 Year
  Sex: Female

DRUGS (13)
  1. GIANVI [Suspect]
  2. TRANSDERM SCOP [Concomitant]
     Dosage: UNK
     Route: 062
     Dates: start: 20120515
  3. PREDNISONE [Concomitant]
     Dosage: 5 MG, UNK
     Dates: start: 20120516
  4. HYDROCODONE/ACETAMINOPHEN [Concomitant]
     Dosage: 7.5/750
     Dates: start: 20120522
  5. KETOROLAC [Concomitant]
     Dosage: 10 MG, UNK
     Dates: start: 20120522
  6. PLAQUENIL [Concomitant]
     Dosage: UNK
     Dates: start: 20120516, end: 20120701
  7. NEXIUM [Concomitant]
     Dosage: 40 MG, UNK
     Dates: start: 20111021, end: 20120709
  8. TORADOL [Concomitant]
  9. DILAUDID [Concomitant]
  10. ZOFRAN [Concomitant]
  11. IBUPROFEN [Concomitant]
  12. VICODIN [Concomitant]
  13. LEVAQUIN [Concomitant]

REACTIONS (1)
  - Pulmonary embolism [Recovered/Resolved]
